FAERS Safety Report 8924031 (Version 1)
Quarter: 2012Q4

REPORT INFORMATION
  Report Type: 
  Country: BR (occurrence: BR)
  Receive Date: 20121126
  Receipt Date: 20121126
  Transmission Date: 20130627
  Serious: Yes (Death, Life-Threatening, Other)
  Sender: FDA-Public Use
  Company Number: BR-ROXANE LABORATORIES, INC.-2012-RO-02432RO

PATIENT
  Age: 61 Year
  Sex: Male

DRUGS (6)
  1. LITHIUM CARBONATE [Suspect]
     Indication: BIPOLAR DISORDER
     Dosage: 600 mg
  2. INSULIN [Suspect]
  3. METFORMIN [Suspect]
     Dosage: 2550 mg
  4. THYROXINE [Suspect]
     Dosage: 50 mcg
  5. ENALAPRIL [Suspect]
     Dosage: 40 mg
  6. ATENOLOL [Suspect]
     Dosage: 100 mg

REACTIONS (12)
  - Haemorrhagic disorder [Fatal]
  - Cardio-respiratory arrest [Unknown]
  - Toxicity to various agents [Unknown]
  - Arrhythmia [Recovered/Resolved]
  - Hypotension [Unknown]
  - Bradycardia [Unknown]
  - Metabolic encephalopathy [Unknown]
  - Renal failure chronic [Unknown]
  - Sepsis [Unknown]
  - Electrocardiogram ST segment elevation [Unknown]
  - Electrocardiogram T wave inversion [Unknown]
  - Left ventricular failure [Unknown]
